FAERS Safety Report 7041256-9 (Version None)
Quarter: 2010Q4

REPORT INFORMATION
  Report Type: 
  Country: None (occurrence: None)
  Receive Date: 20101013
  Receipt Date: 20100929
  Transmission Date: 20110411
  Serious: Yes (Death, Hospitalization, Other)
  Sender: FDA-Public Use
  Company Number: PHEH2008US04339

PATIENT
  Sex: Female
  Weight: 93.7 kg

DRUGS (27)
  1. AREDIA [Suspect]
     Dosage: 90 MG, QMO
  2. ZOMETA [Suspect]
  3. FOSAMAX [Suspect]
  4. GENASENSE [Concomitant]
     Dosage: UNK
  5. THALIDOMIDE [Concomitant]
     Dosage: UNK
  6. DECADRON [Concomitant]
     Dosage: UNK
  7. SYNTHROID [Concomitant]
  8. AUGMENTIN '125' [Concomitant]
     Dosage: UNK
  9. CHEMOTHERAPEUTICS NOS [Concomitant]
  10. BLOOD CELLS, PACKED HUMAN [Concomitant]
     Dosage: UNK
  11. RADIATION THERAPY [Concomitant]
     Dosage: UNK
     Dates: start: 19990101
  12. CYCLOSPORINE [Concomitant]
  13. VINCRISTINE [Concomitant]
  14. MELPHALAN HYDROCHLORIDE [Concomitant]
  15. CYTOXAN [Concomitant]
  16. PREDNISONE [Concomitant]
  17. DOXORUBICIN ^BIGMAR^ [Concomitant]
  18. DEXAMETHASONE [Concomitant]
  19. INTERFERON ALFA [Concomitant]
  20. PROCRIT                            /00909301/ [Concomitant]
  21. ADRIAMYCIN PFS [Concomitant]
  22. TAXOL [Concomitant]
  23. LEVOXYL [Concomitant]
  24. CALCIUM [Concomitant]
  25. FERROUS SULFATE [Concomitant]
  26. VITAMIN B6 [Concomitant]
  27. COUMADIN [Concomitant]

REACTIONS (35)
  - ANHEDONIA [None]
  - ANXIETY [None]
  - ATRIOVENTRICULAR BLOCK FIRST DEGREE [None]
  - BONE MARROW TRANSPLANT [None]
  - BREAST CANCER METASTATIC [None]
  - BREATH ODOUR [None]
  - COMPRESSION FRACTURE [None]
  - CONJUNCTIVITIS VIRAL [None]
  - DISABILITY [None]
  - HYPERTENSION [None]
  - INFECTED SKIN ULCER [None]
  - INJURY [None]
  - MITRAL VALVE INCOMPETENCE [None]
  - MONOPARESIS [None]
  - MUSCULAR WEAKNESS [None]
  - MYELOMA RECURRENCE [None]
  - NEURODEGENERATIVE DISORDER [None]
  - OEDEMA PERIPHERAL [None]
  - OSTEOARTHRITIS [None]
  - OSTEOLYSIS [None]
  - OSTEONECROSIS OF JAW [None]
  - OSTEOPENIA [None]
  - PAIN [None]
  - PANCYTOPENIA [None]
  - PARAESTHESIA [None]
  - RADICAL MASTECTOMY [None]
  - SKIN ULCER [None]
  - SWELLING [None]
  - TENDERNESS [None]
  - TOOTH ABSCESS [None]
  - TRANSIENT ISCHAEMIC ATTACK [None]
  - TRICUSPID VALVE INCOMPETENCE [None]
  - URETHRAL CARUNCLE [None]
  - URINARY TRACT INFECTION [None]
  - VENOUS THROMBOSIS LIMB [None]
